FAERS Safety Report 19386685 (Version 1)
Quarter: 2021Q2

REPORT INFORMATION
  Report Type: Spontaneous
  Country: ES (occurrence: ES)
  Receive Date: 20210608
  Receipt Date: 20210608
  Transmission Date: 20210717
  Serious: Yes (Death, Hospitalization, Other)
  Sender: FDA-Public Use
  Company Number: ES-PFIZER INC-2021587891

PATIENT
  Age: 83 Year
  Sex: Female

DRUGS (5)
  1. FUROSEMIDE. [Suspect]
     Active Substance: FUROSEMIDE
     Indication: HYPERTENSION
     Dosage: 240 MG, DAILY
  2. SPIRONOLACTONE. [Suspect]
     Active Substance: SPIRONOLACTONE
     Dosage: 50 MG,  DOUBLED DOSE
  3. CARVEDILOL. [Concomitant]
     Active Substance: CARVEDILOL
     Indication: HYPERTENSION
     Dosage: 6.25 MG
  4. RAMIPRIL. [Concomitant]
     Active Substance: RAMIPRIL
     Indication: CARDIAC FAILURE
     Dosage: 2.5 MG
  5. METFORMIN [Concomitant]
     Active Substance: METFORMIN HYDROCHLORIDE
     Indication: DIABETES MELLITUS
     Dosage: 850 MG

REACTIONS (4)
  - Cardio-respiratory arrest [Fatal]
  - Hypercapnia [Recovering/Resolving]
  - Metabolic alkalosis [Recovering/Resolving]
  - Acute kidney injury [Recovering/Resolving]
